FAERS Safety Report 6983128 (Version 2)
Quarter: 2014Q1

REPORT INFORMATION
  Report Type: Spontaneous
  Country: US (occurrence: US)
  Receive Date: 20090430
  Receipt Date: 20140101
  Transmission Date: 20141002
  Serious: No
  Sender: FDA-Public Use
  Company Number: US-ASTRAZENECA-2008UW27728

PATIENT
  Age: 52 Year
  Sex: Male

DRUGS (4)
  1. NEXIUM [Suspect]
     Indication: GASTROOESOPHAGEAL REFLUX DISEASE
     Route: 048
     Dates: end: 20131118
  2. NEXIUM [Suspect]
     Indication: DYSPEPSIA
     Route: 048
     Dates: end: 20131118
  3. NEXIUM [Suspect]
     Indication: GASTROOESOPHAGEAL REFLUX DISEASE
     Dosage: THREE PILLS FROM PHARMACY
     Route: 048
  4. NEXIUM [Suspect]
     Indication: DYSPEPSIA
     Dosage: THREE PILLS FROM PHARMACY
     Route: 048

REACTIONS (7)
  - Chest pain [Unknown]
  - Adverse event [Unknown]
  - Stress [Unknown]
  - Abdominal discomfort [Unknown]
  - Abdominal tenderness [Unknown]
  - Intentional drug misuse [Unknown]
  - Drug dose omission [Unknown]
